FAERS Safety Report 22076956 (Version 2)
Quarter: 2024Q2

REPORT INFORMATION
  Report Type: Spontaneous
  Country: US (occurrence: US)
  Receive Date: 20230309
  Receipt Date: 20240612
  Transmission Date: 20240716
  Serious: Yes (Other)
  Sender: FDA-Public Use
  Company Number: US-ABBVIE-4332382

PATIENT
  Age: 76 Year
  Sex: Female
  Weight: 58 kg

DRUGS (5)
  1. SKYRIZI [Suspect]
     Active Substance: RISANKIZUMAB-RZAA
     Indication: Psoriasis
     Dosage: FORM STRENGTH: 150 MILLIGRAM?LAST ADMIN DATE: 21 NOV 2022
     Route: 058
     Dates: start: 202211
  2. SKYRIZI [Suspect]
     Active Substance: RISANKIZUMAB-RZAA
     Dosage: FORM STRENGTH: 150 MILLIGRAM
     Route: 058
     Dates: start: 20230306
  3. ESTRADIOL [Concomitant]
     Active Substance: ESTRADIOL
     Indication: Postoperative care
  4. METOPROLOL [Concomitant]
     Active Substance: METOPROLOL
     Indication: Blood pressure measurement
  5. VALACYCLOVIR HYDROCHLORIDE [Concomitant]
     Active Substance: VALACYCLOVIR HYDROCHLORIDE
     Indication: Depression

REACTIONS (5)
  - Meniscus injury [Recovering/Resolving]
  - Wrong technique in product usage process [Not Recovered/Not Resolved]
  - Device issue [Not Recovered/Not Resolved]
  - Joint injury [Unknown]
  - Gait disturbance [Recovering/Resolving]

NARRATIVE: CASE EVENT DATE: 20230221
